FAERS Safety Report 9725160 (Version 1)
Quarter: 2013Q4

REPORT INFORMATION
  Report Type: Spontaneous
  Country: US (occurrence: US)
  Receive Date: 20131203
  Receipt Date: 20131203
  Transmission Date: 20140711
  Serious: Yes (Other)
  Sender: FDA-Public Use
  Company Number: US-BRISTOL-MYERS SQUIBB COMPANY-19839778

PATIENT
  Age: 82 Year
  Sex: Female

DRUGS (1)
  1. COUMADIN [Suspect]
     Dates: end: 20131118

REACTIONS (1)
  - Pulmonary mass [Unknown]
